FAERS Safety Report 25889031 (Version 1)
Quarter: 2025Q4

REPORT INFORMATION
  Report Type: Report from Study
  Country: US (occurrence: US)
  Receive Date: 20251007
  Receipt Date: 20251007
  Transmission Date: 20260118
  Serious: Yes (Hospitalization)
  Sender: ABBVIE
  Company Number: US-ABBVIE-6487893

PATIENT
  Age: 79 Year
  Sex: Female

DRUGS (2)
  1. RINVOQ [Suspect]
     Active Substance: UPADACITINIB
     Indication: Product used for unknown indication
     Dosage: LAST ADMIN DATE: 2025
     Route: 048
     Dates: start: 20250801
  2. RINVOQ [Suspect]
     Active Substance: UPADACITINIB
     Indication: Product used for unknown indication
     Route: 048
     Dates: start: 202509

REACTIONS (4)
  - Gastrointestinal disorder [Unknown]
  - Dermatitis atopic [Unknown]
  - Cholelithiasis [Unknown]
  - Nausea [Unknown]

NARRATIVE: CASE EVENT DATE: 20250101
